FAERS Safety Report 5424702-3 (Version None)
Quarter: 2007Q3

REPORT INFORMATION
  Report Type: 
  Country: None (occurrence: None)
  Receive Date: 20070822
  Receipt Date: 20070822
  Transmission Date: 20080115
  Serious: Yes (Hospitalization)
  Sender: FDA-Public Use
  Company Number: None

PATIENT
  Sex: Female
  Weight: 72.5 kg

DRUGS (2)
  1. FLUDARABINE PHOSPHATE [Suspect]
     Indication: STEM CELL TRANSPLANT
     Dosage: 50 MG DAILY IV DRIP
     Route: 041
     Dates: start: 20070807, end: 20070813
  2. THIOTEPA [Suspect]
     Dosage: 340 MG DAILY IV DRIP
     Route: 041
     Dates: start: 20070809, end: 20070810

REACTIONS (7)
  - BLOOD CULTURE POSITIVE [None]
  - ESCHERICHIA INFECTION [None]
  - HYPOTENSION [None]
  - INFUSION RELATED REACTION [None]
  - PYREXIA [None]
  - STEM CELL TRANSPLANT [None]
  - TACHYCARDIA [None]
